FAERS Safety Report 9292871 (Version 1)
Quarter: 2013Q2

REPORT INFORMATION
  Report Type: Spontaneous
  Country: US (occurrence: US)
  Receive Date: 20130516
  Receipt Date: 20130516
  Transmission Date: 20140414
  Serious: Yes (Other)
  Sender: FDA-Public Use
  Company Number: US-PFIZER INC-2013149774

PATIENT
  Age: 68 Year
  Sex: Male
  Weight: 77.1 kg

DRUGS (2)
  1. CADUET [Suspect]
     Dosage: [AMLODIPINE BESILATE10MG]/ [ATORVASTATIN CALCIUM 20MG] ONCE A DAY
     Route: 048
     Dates: start: 2005
  2. METFORMIN [Concomitant]
     Indication: GLUCOSE TOLERANCE IMPAIRED
     Dosage: UNK

REACTIONS (1)
  - Gastrointestinal disorder [Unknown]
